FAERS Safety Report 10876465 (Version 2)
Quarter: 2015Q2

REPORT INFORMATION
  Report Type: Spontaneous
  Country: US (occurrence: US)
  Receive Date: 20150228
  Receipt Date: 20150501
  Transmission Date: 20150821
  Serious: Yes (Other)
  Sender: FDA-Public Use
  Company Number: US-BIOGENIDEC-2015BI024102

PATIENT
  Sex: Female

DRUGS (4)
  1. TYSABRI [Suspect]
     Active Substance: NATALIZUMAB
     Indication: PRODUCT USED FOR UNKNOWN INDICATION
     Route: 042
  2. OXYCODONE [Concomitant]
     Active Substance: OXYCODONE
  3. FENTANYL. [Concomitant]
     Active Substance: FENTANYL
  4. MARINOL [Concomitant]
     Active Substance: DRONABINOL

REACTIONS (2)
  - Anaphylactic shock [Unknown]
  - Back pain [Unknown]
